FAERS Safety Report 9164025 (Version 2)
Quarter: 2013Q1

REPORT INFORMATION
  Report Type: Spontaneous
  Country: US (occurrence: US)
  Receive Date: 20130313
  Receipt Date: 20130313
  Transmission Date: 20140127
  Serious: Yes (Other)
  Sender: FDA-Public Use
  Company Number: US-RB-050910-13

PATIENT
  Age: 26 Year
  Sex: Female

DRUGS (3)
  1. SUBUTEX [Suspect]
     Indication: PRODUCT USED FOR UNKNOWN INDICATION
     Dosage: DOSING DETAILS UNSPECIFIED
     Route: 065
  2. TYLENOL [Concomitant]
     Indication: MIGRAINE
     Dosage: DOSING DETAILS UNSPECIFIED
     Route: 065
  3. ZOFRAN [Concomitant]
     Indication: NAUSEA
     Dosage: DOSING DETAILS UNSPECIFIED
     Route: 065

REACTIONS (3)
  - Exposure during pregnancy [Recovered/Resolved]
  - Premature delivery [Recovered/Resolved]
  - Nausea [Recovered/Resolved]
